FAERS Safety Report 11377794 (Version 2)
Quarter: 2015Q3

REPORT INFORMATION
  Report Type: Spontaneous
  Country: US (occurrence: US)
  Receive Date: 20150811
  Receipt Date: 20150903
  Transmission Date: 20151125
  Serious: No
  Sender: FDA-Public Use
  Company Number: US-ELI_LILLY_AND_COMPANY-US200908005965

PATIENT
  Age: 68 Year
  Sex: Female

DRUGS (4)
  1. BYETTA [Concomitant]
     Active Substance: EXENATIDE
     Dosage: UNK, 3/D
  2. LANTUS [Concomitant]
     Active Substance: INSULIN GLARGINE
     Dates: start: 2007, end: 2009
  3. HUMALOG MIX75/25 [Suspect]
     Active Substance: INSULIN LISPRO
     Indication: DIABETES MELLITUS
     Dosage: 70 U, DAILY (1/D)
     Dates: end: 2007
  4. HUMULIN N [Suspect]
     Active Substance: INSULIN HUMAN
     Indication: DIABETES MELLITUS
     Dosage: 43 U, 3/D
     Dates: start: 200906

REACTIONS (14)
  - Blood glucose increased [Unknown]
  - Appetite disorder [Unknown]
  - Feeling abnormal [Unknown]
  - Urinary retention [Unknown]
  - Blood glucose increased [Unknown]
  - Drug dose omission [Unknown]
  - Micturition urgency [Unknown]
  - Drug ineffective [Unknown]
  - Hyperhidrosis [Unknown]
  - Photosensitivity reaction [Recovered/Resolved]
  - Dysuria [Unknown]
  - Micturition disorder [Unknown]
  - Blood glucose decreased [Unknown]
  - Drug dose omission [Unknown]

NARRATIVE: CASE EVENT DATE: 200906
